FAERS Safety Report 24728790 (Version 1)
Quarter: 2024Q4

REPORT INFORMATION
  Report Type: Report from Study
  Country: DE (occurrence: DE)
  Receive Date: 20241212
  Receipt Date: 20241212
  Transmission Date: 20250115
  Serious: Yes (Hospitalization)
  Sender: JOHNSON AND JOHNSON
  Company Number: DE-JNJFOC-20241228479

PATIENT
  Age: 30 Year
  Sex: Male
  Weight: 85 kg

DRUGS (1)
  1. SPRAVATO [Suspect]
     Active Substance: ESKETAMINE
     Indication: Depression
     Route: 045
     Dates: start: 20240525

REACTIONS (1)
  - Supraventricular tachycardia [Recovering/Resolving]

NARRATIVE: CASE EVENT DATE: 20241130
